FAERS Safety Report 7397587-6 (Version None)
Quarter: 2011Q2

REPORT INFORMATION
  Report Type: 
  Country: None (occurrence: None)
  Receive Date: 20110401
  Receipt Date: 20110401
  Transmission Date: 20111010
  Serious: Yes (Disabling)
  Sender: FDA-Public Use
  Company Number: None

PATIENT
  Age: 56 Year
  Sex: Female
  Weight: 54.4316 kg

DRUGS (1)
  1. PERIDEX [Suspect]
     Indication: DENTAL OPERATION
     Dosage: 1 TBSP 3X DAILY TOP
     Route: 061
     Dates: start: 20110323, end: 20110330

REACTIONS (1)
  - TOOTH DISCOLOURATION [None]
